FAERS Safety Report 10418957 (Version 1)
Quarter: 2014Q2

REPORT INFORMATION
  Report Type: Spontaneous
  Country: US (occurrence: None)
  Receive Date: 20140617
  Receipt Date: 20140617
  Transmission Date: 20141212
  Serious: Yes (Other)
  Sender: FDA-Public Use
  Company Number: USW201305-000058

PATIENT
  Age: 59 Year
  Sex: Female
  Weight: 49.44 kg

DRUGS (5)
  1. APOKYN [Suspect]
     Indication: PARKINSON^S DISEASE
     Dates: start: 20130328, end: 20130329
  2. COMTAN (ENTACAPONE) [Concomitant]
  3. CARBIDOPA/LEVODOPA [Concomitant]
  4. ZONISAMIDE [Concomitant]
  5. AMANDATINE [Concomitant]

REACTIONS (4)
  - Hypersensitivity [None]
  - Injection site erythema [None]
  - Injection site pruritus [None]
  - Injection site mass [None]
